FAERS Safety Report 16004894 (Version 1)
Quarter: 2019Q1

REPORT INFORMATION
  Report Type: Spontaneous
  Country: US (occurrence: US)
  Receive Date: 20190130
  Receipt Date: 20190130
  Transmission Date: 20190418
  Serious: No
  Sender: FDA-Public Use
  Company Number: None

PATIENT
  Age: 58 Year
  Sex: Male

DRUGS (1)
  1. HUMIRA [Suspect]
     Active Substance: ADALIMUMAB
     Indication: PAIN IN EXTREMITY
     Route: 058

REACTIONS (2)
  - Affective disorder [None]
  - Anxiety [None]

NARRATIVE: CASE EVENT DATE: 20180123
